FAERS Safety Report 20279607 (Version 1)
Quarter: 2021Q4

REPORT INFORMATION
  Report Type: Spontaneous
  Country: US (occurrence: None)
  Receive Date: 20211230
  Receipt Date: 20211230
  Transmission Date: 20220304
  Serious: Yes (Hospitalization, Disabling)
  Sender: FDA-Public Use
  Company Number: None

PATIENT
  Age: 71 Year
  Sex: Male

DRUGS (1)
  1. MYCOPHENOLIC ACID [Suspect]
     Active Substance: MYCOPHENOLIC ACID
     Indication: Lupus nephritis
     Dosage: FREQUENCY : TWICE A DAY;?
     Route: 048
     Dates: start: 20211009, end: 20211102

REACTIONS (4)
  - Chest pain [None]
  - Rectal haemorrhage [None]
  - Platelet count abnormal [None]
  - White blood cell count abnormal [None]

NARRATIVE: CASE EVENT DATE: 20211102
